FAERS Safety Report 16624344 (Version 1)
Quarter: 2019Q3

REPORT INFORMATION
  Report Type: Spontaneous
  Country: ID (occurrence: ID)
  Receive Date: 20190724
  Receipt Date: 20190724
  Transmission Date: 20191004
  Serious: Yes (Hospitalization)
  Sender: FDA-Public Use
  Company Number: ID-BAXTER-2019BAX014144

PATIENT
  Age: 46 Year
  Sex: Female

DRUGS (2)
  1. HOLOXAN (2G) [Suspect]
     Active Substance: IFOSFAMIDE
     Indication: CERVIX CARCINOMA
     Route: 042
  2. CISPLATIN. [Suspect]
     Active Substance: CISPLATIN
     Indication: CERVIX CARCINOMA
     Route: 042

REACTIONS (4)
  - Vomiting [Unknown]
  - Feeding disorder [Unknown]
  - Nausea [Unknown]
  - Hallucination [Unknown]
